FAERS Safety Report 4281013-X (Version None)
Quarter: 2004Q1

REPORT INFORMATION
  Report Type: 
  Country: None (occurrence: None)
  Receive Date: 20040127
  Receipt Date: 20040121
  Transmission Date: 20041129
  Serious: Yes (Other)
  Sender: FDA-Public Use
  Company Number: 200400885

PATIENT
  Age: 79 Year
  Sex: Male

DRUGS (4)
  1. IMODIUM A-D [Suspect]
     Indication: DIARRHOEA
     Dosage: 14 MG TOT PO
     Route: 048
     Dates: start: 20040120, end: 20040121
  2. UNSPECIFIED BLOOD PRESSURE MEDICATIONS [Concomitant]
  3. UNSPECIFIED ^WATER PILLS^ [Concomitant]
  4. UNSPECIFIED DIABETES MEDICATIONS [Concomitant]

REACTIONS (3)
  - BLOOD GLUCOSE DECREASED [None]
  - DEHYDRATION [None]
  - DRUG INEFFECTIVE [None]
